FAERS Safety Report 6243165-1 (Version None)
Quarter: 2009Q2

REPORT INFORMATION
  Report Type: 
  Country: None (occurrence: None)
  Receive Date: 20090622
  Receipt Date: 20090622
  Transmission Date: 20091009
  Serious: Yes (Other)
  Sender: FDA-Public Use
  Company Number: None

PATIENT
  Sex: Female
  Weight: 57.6068 kg

DRUGS (2)
  1. ZICAM COLD REMEDY NASAL GEL MATRIXX [Suspect]
     Indication: NASOPHARYNGITIS
     Dosage: RECOMMENDED DOSE DURING OLDS NASAL
     Route: 045
     Dates: start: 20020101, end: 20090616
  2. ZICAM COLD REMEDY NASAL GEL MATRIXX [Suspect]
     Indication: RESPIRATORY TRACT INFECTION
     Dosage: RECOMMENDED DOSE DURING OLDS NASAL
     Route: 045
     Dates: start: 20020101, end: 20090616

REACTIONS (1)
  - NO ADVERSE EVENT [None]
